FAERS Safety Report 6982268-0 (Version None)
Quarter: 2010Q3

REPORT INFORMATION
  Report Type: 
  Country: None (occurrence: None)
  Receive Date: 20100914
  Receipt Date: 20091230
  Transmission Date: 20110219
  Serious: Yes (Other)
  Sender: FDA-Public Use
  Company Number: US-PFIZER INC-2009287917

PATIENT
  Sex: Female
  Weight: 118.37 kg

DRUGS (18)
  1. LYRICA [Suspect]
     Indication: FIBROMYALGIA
     Dosage: 50 MG, 1X/DAY
     Route: 048
     Dates: start: 20090914, end: 20090901
  2. GUAIFENESIN [Concomitant]
     Dosage: 600 MG, 2X/DAY
  3. PREDNISONE [Concomitant]
     Dosage: 10 MG, 1X/DAY
  4. ACIPHEX [Concomitant]
     Dosage: 20 MG, 1X/DAY
  5. SKELAXIN [Concomitant]
     Dosage: 800 MG, 3X/DAY
  6. CYMBALTA [Concomitant]
     Dosage: 60 MG, 2X/DAY
  7. BENADRYL [Concomitant]
     Indication: HYPERSENSITIVITY
     Dosage: 25 MG, 3X/DAY
  8. PROMETHAZINE [Concomitant]
     Dosage: 25 MG, AS NEEDED
  9. KLONOPIN [Concomitant]
     Dosage: 1 MG, 3X/DAY
  10. GABAPENTIN [Concomitant]
     Dosage: 300 MG, 4X/DAY
  11. OXYCODONE AND ACETAMINOPHEN [Concomitant]
     Dosage: 5/325MG
  12. HYOSCYAMINE [Concomitant]
     Dosage: 0.375 MG, 2X/DAY
  13. ESTRACE [Concomitant]
     Dosage: 1 G, 1X/DAY
  14. UROGESIC BLUE [Concomitant]
     Dosage: UNK
  15. LOVAZA [Concomitant]
     Dosage: 1000 MG, 1X/DAY
  16. EVENING PRIMROSE OIL [Concomitant]
     Dosage: 500 MG, 1X/DAY
  17. VAGIFEM [Concomitant]
     Dosage: UNK
  18. LIDOCAINE [Concomitant]
     Dosage: UNK

REACTIONS (4)
  - ANXIETY [None]
  - DEPRESSION [None]
  - OVERDOSE [None]
  - SUICIDE ATTEMPT [None]
